FAERS Safety Report 8547972-1 (Version None)
Quarter: 2012Q3

REPORT INFORMATION
  Report Type: 
  Country: None (occurrence: None)
  Receive Date: 20120729
  Receipt Date: 20120717
  Transmission Date: 20120928
  Serious: Yes (Hospitalization, Disabling, Other)
  Sender: FDA-Public Use
  Company Number: US-009507513-1203USA03835

PATIENT

DRUGS (7)
  1. CALCIUM (UNSPECIFIED) [Concomitant]
  2. FOSAMAX [Suspect]
     Indication: OSTEOPOROSIS
     Dosage: 70 MG, QW
     Route: 048
     Dates: start: 20050106, end: 20080601
  3. ALENDRONATE SODIUM [Suspect]
     Indication: OSTEOPOROSIS
     Dosage: 70 MG, QW
     Route: 048
     Dates: start: 20080601, end: 20111101
  4. VITAMIN D (UNSPECIFIED) [Concomitant]
  5. DIOVAN [Concomitant]
     Indication: HYPERTENSION
     Dosage: 160 MG, QD
  6. VITAMINS (UNSPECIFIED) [Concomitant]
  7. CALTRATE (CALCIUM CARBONATE (+) CHOLECALCIFEROL) [Concomitant]

REACTIONS (13)
  - PNEUMONIA [None]
  - OSTEOARTHRITIS [None]
  - VERTIGO [None]
  - VIRAL INFECTION [None]
  - MUSCLE STRAIN [None]
  - LIMB ASYMMETRY [None]
  - OROPHARYNGEAL PAIN [None]
  - MEDICAL DEVICE COMPLICATION [None]
  - MUSCULOSKELETAL DISCOMFORT [None]
  - RADIUS FRACTURE [None]
  - FEMUR FRACTURE [None]
  - ANAEMIA [None]
  - TACHYCARDIA [None]
